FAERS Safety Report 10052746 (Version 1)
Quarter: 2014Q2

REPORT INFORMATION
  Report Type: Report from Study
  Country: CA (occurrence: CA)
  Receive Date: 20140402
  Receipt Date: 20140402
  Transmission Date: 20141212
  Serious: Yes (Other)
  Sender: FDA-Public Use
  Company Number: CA-JNJFOC-20140317645

PATIENT
  Sex: Female
  Weight: 77 kg

DRUGS (6)
  1. REMICADE [Suspect]
     Indication: ANKYLOSING SPONDYLITIS
     Route: 042
     Dates: start: 20100803
  2. PENTASA [Concomitant]
     Route: 065
  3. MS CONTIN [Concomitant]
     Route: 065
  4. SYMBICORT [Concomitant]
     Route: 065
  5. FOLIC ACID [Concomitant]
     Route: 065
  6. CELEBREX [Concomitant]
     Dosage: 1-2 AS NECESSARY.
     Route: 048

REACTIONS (2)
  - Adrenal disorder [Unknown]
  - Blood iron increased [Unknown]
